FAERS Safety Report 19287188 (Version 1)
Quarter: 2021Q2

REPORT INFORMATION
  Report Type: Report from Study
  Country: DE (occurrence: MX)
  Receive Date: 20210521
  Receipt Date: 20210521
  Transmission Date: 20210717
  Serious: Yes (Hospitalization)
  Sender: FDA-Public Use
  Company Number: MX-ELI_LILLY_AND_COMPANY-MX202105009230

PATIENT
  Age: 65 Year
  Sex: Male

DRUGS (2)
  1. CAPECITABINE. [Concomitant]
     Active Substance: CAPECITABINE
     Indication: COLORECTAL CANCER
     Dosage: UNK
  2. CETUXIMAB. [Suspect]
     Active Substance: CETUXIMAB
     Indication: COLORECTAL CANCER
     Dosage: 900 MG, 2/M (ONCE IN FIFTEEN DAYS)
     Route: 065
     Dates: start: 20200320, end: 202105

REACTIONS (5)
  - Dyspnoea [Recovered/Resolved]
  - Chest discomfort [Recovered/Resolved]
  - Off label use [Unknown]
  - Dizziness [Recovered/Resolved]
  - Vision blurred [Recovered/Resolved]

NARRATIVE: CASE EVENT DATE: 202105
